FAERS Safety Report 13151764 (Version 3)
Quarter: 2017Q3

REPORT INFORMATION
  Report Type: Report from Study
  Country: CA (occurrence: CA)
  Receive Date: 20170125
  Receipt Date: 20170719
  Transmission Date: 20171127
  Serious: Yes (Death, Hospitalization)
  Sender: FDA-Public Use
  Company Number: CA-HLSUS-2016-CA-000773

PATIENT
  Age: 65 Year
  Sex: Female

DRUGS (1)
  1. CLOZARIL [Suspect]
     Active Substance: CLOZAPINE
     Route: 048
     Dates: start: 20030714

REACTIONS (16)
  - Anaemia [Unknown]
  - Anxiety [Unknown]
  - Chest pain [Unknown]
  - Renal failure [Fatal]
  - Myocardial infarction [Fatal]
  - Depressed level of consciousness [Unknown]
  - Muscular weakness [Unknown]
  - Dyspnoea exertional [Unknown]
  - Depression [Unknown]
  - Neutrophilia [Unknown]
  - Cardiac failure congestive [Fatal]
  - Pneumonia [Unknown]
  - Urinary tract infection [Unknown]
  - Leukocytosis [Unknown]
  - Muscle contracture [Unknown]
  - Pneumonia [Unknown]

NARRATIVE: CASE EVENT DATE: 201603
